FAERS Safety Report 4319275-2 (Version None)
Quarter: 2004Q1

REPORT INFORMATION
  Report Type: 
  Country: None (occurrence: None)
  Receive Date: 20040316
  Receipt Date: 20040226
  Transmission Date: 20041129
  Serious: Yes (Hospitalization, Other)
  Sender: FDA-Public Use
  Company Number: 20040200190

PATIENT
  Age: 55 Year
  Sex: Male

DRUGS (11)
  1. DESFLURANE (BAXTER) [Suspect]
     Indication: MAINTENANCE OF ANAESTHESIA
     Dosage: 1 OTHER IH
     Route: 025
     Dates: start: 20000822, end: 20030822
  2. PENICILLIN G SODIUM [Concomitant]
  3. ACETAMINOPHEN [Concomitant]
  4. CARBETAPENTANE [Concomitant]
  5. MEFENAMIC ACID [Concomitant]
  6. FENTANYL [Concomitant]
  7. 2.5% SODIUM THIOPENTAL [Concomitant]
  8. ATRACURIUM BESYLATE [Concomitant]
  9. OXYGEN [Concomitant]
  10. NICARDIPINE HCL [Concomitant]
  11. LABETALOL HCL [Concomitant]

REACTIONS (5)
  - HEPATIC STEATOSIS [None]
  - HEPATITIS TOXIC [None]
  - HEPATOMEGALY [None]
  - JAUNDICE [None]
  - REFUSAL OF TREATMENT BY PATIENT [None]
